FAERS Safety Report 9848159 (Version 1)
Quarter: 2014Q1

REPORT INFORMATION
  Report Type: Spontaneous
  Country: US (occurrence: None)
  Receive Date: 20140127
  Receipt Date: 20140127
  Transmission Date: 20141002
  Serious: Yes (Hospitalization, Other)
  Sender: FDA-Public Use
  Company Number: None

PATIENT
  Sex: Female
  Weight: 54.43 kg

DRUGS (20)
  1. PRADAXA [Suspect]
  2. ACETAMINOPHEN-HYDRODRONE [Concomitant]
  3. ALPRAZOLAM - [Concomitant]
  4. DRAMAMINE [Concomitant]
  5. MULTAQ [Concomitant]
  6. ZETIA [Concomitant]
  7. ADVAIR [Concomitant]
  8. ADVAIR [Concomitant]
  9. FOROSEMIDE [Concomitant]
  10. SYNTHROID [Concomitant]
  11. TOPROL XL [Concomitant]
  12. ALBUTEROL [Concomitant]
  13. PREDISONE [Concomitant]
  14. XARLTO [Concomitant]
  15. REVATIO [Concomitant]
  16. SPIRONOLACTONE [Concomitant]
  17. SPIRIVA [Concomitant]
  18. ADVAIR [Concomitant]
  19. PREDEZONE [Concomitant]
  20. PANTOPRAZOLE [Concomitant]

REACTIONS (2)
  - Asthma [None]
  - Condition aggravated [None]
